FAERS Safety Report 7665783 (Version 2)
Quarter: 2019Q4

REPORT INFORMATION
  Report Type: Spontaneous
  Country: ES (occurrence: ES)
  Receive Date: 20101112
  Receipt Date: 20191111
  Transmission Date: 20200122
  Serious: Yes (Other)
  Sender: FDA-Public Use
  Company Number: ES-SANOFI-AVENTIS-2010SA067197

PATIENT
  Age: 89 Year
  Sex: Female

DRUGS (1)
  1. ZOLPIDEM TARTRATE. [Suspect]
     Active Substance: ZOLPIDEM TARTRATE
     Indication: INSOMNIA
     Dosage: 20 MG,HS
     Route: 048

REACTIONS (8)
  - Bulimia nervosa [Unknown]
  - Overdose [Recovered/Resolved]
  - Amnesia [Unknown]
  - Weight increased [Recovered/Resolved]
  - Abnormal sleep-related event [Recovered/Resolved]
  - Thermal burn [Unknown]
  - Sleep-related eating disorder [Recovered/Resolved]
  - Anorexia nervosa [Recovered/Resolved]
